FAERS Safety Report 9253929 (Version 1)
Quarter: 2013Q1

REPORT INFORMATION
  Report Type: Spontaneous
  Country: US (occurrence: None)
  Receive Date: 20121203
  Receipt Date: 20121203
  Transmission Date: 20140127
  Serious: Yes (Hospitalization, Other)
  Sender: FDA-Public Use
  Company Number: 2011SP049324

PATIENT
  Age: 21 Year
  Sex: Female
  Weight: 85.7 kg

DRUGS (5)
  1. NUVARING [Suspect]
     Indication: CONTRACEPTION
     Dates: start: 20100512, end: 20100615
  2. NUVARING [Suspect]
     Indication: CONTRACEPTION
     Dates: start: 20100512, end: 20100615
  3. PROVENTIL (ALBUTEROL) [Concomitant]
  4. PROVENTIL (ALBUTEROL) [Concomitant]
  5. RITALIN (METHYLPHENIDATE HYDROCHLORIDE) [Concomitant]

REACTIONS (2)
  - Pulmonary embolism [None]
  - Gonorrhoea [None]
